FAERS Safety Report 23364828 (Version 1)
Quarter: 2024Q1

REPORT INFORMATION
  Report Type: Report from Study
  Country: BE (occurrence: BE)
  Receive Date: 20240104
  Receipt Date: 20240104
  Transmission Date: 20240409
  Serious: Yes (Hospitalization)
  Sender: FDA-Public Use
  Company Number: BE-SA-2023SA395950

PATIENT
  Age: 51 Year
  Weight: 82 kg

DRUGS (8)
  1. ISATUXIMAB [Suspect]
     Active Substance: ISATUXIMAB
     Indication: Stem cell transplant
     Dosage: 830 MG
     Route: 042
     Dates: start: 20230504, end: 20230504
  2. ISATUXIMAB [Suspect]
     Active Substance: ISATUXIMAB
     Dosage: 830 MG
     Dates: start: 20231020
  3. CARFILZOMIB [Suspect]
     Active Substance: CARFILZOMIB
     Indication: Stem cell transplant
     Dosage: 107.2 MG
     Route: 042
     Dates: start: 20230504, end: 20230504
  4. CARFILZOMIB [Suspect]
     Active Substance: CARFILZOMIB
     Dosage: 107.2 MG
     Route: 042
     Dates: start: 20231020, end: 20231020
  5. LENALIDOMIDE [Suspect]
     Active Substance: LENALIDOMIDE
     Indication: Stem cell transplant
     Dosage: 15 MG
     Route: 048
     Dates: start: 20230504, end: 20230504
  6. LENALIDOMIDE [Suspect]
     Active Substance: LENALIDOMIDE
     Dosage: 15 MG
     Route: 048
     Dates: start: 20231020, end: 20231020
  7. DEXAMETHASONE [Suspect]
     Active Substance: DEXAMETHASONE
     Indication: Stem cell transplant
     Dosage: 40 MG, QW
     Route: 048
     Dates: start: 20230524, end: 20230524
  8. DEXAMETHASONE [Suspect]
     Active Substance: DEXAMETHASONE
     Dosage: 40 MG
     Route: 048
     Dates: start: 20231027, end: 20231027

REACTIONS (1)
  - Septic shock [Recovered/Resolved]

NARRATIVE: CASE EVENT DATE: 20231211
